FAERS Safety Report 8765489 (Version 1)
Quarter: 2012Q4

REPORT INFORMATION
  Report Type: 
  Country: DE (occurrence: DE)
  Receive Date: 20120902
  Receipt Date: 20120902
  Transmission Date: 20130627
  Serious: Yes (Hospitalization)
  Sender: FDA-Public Use
  Company Number: DE-PFIZER INC-2012211407

PATIENT
  Sex: Male
  Weight: 64.3 kg

DRUGS (14)
  1. GENOTROPIN [Suspect]
     Indication: HYPOPITUITARISM
     Dosage: 1 mg, 7-WK
     Route: 058
     Dates: start: 20051215
  2. LAMICTAL ^BURROUGHS WELLCOME^ [Concomitant]
     Indication: EPILEPSY
     Dosage: UNK
  3. LAMICTAL ^BURROUGHS WELLCOME^ [Concomitant]
     Indication: CONVULSION
  4. LAMICTAL ^BURROUGHS WELLCOME^ [Concomitant]
     Indication: CONVULSION
  5. ERGENYL ^LABAZ^ [Concomitant]
     Indication: EPILEPSY
     Dosage: UNK
  6. ERGENYL ^LABAZ^ [Concomitant]
     Indication: CONVULSION
  7. ERGENYL ^LABAZ^ [Concomitant]
     Indication: CONVULSION
  8. TESTOSTERONE ENANTATE [Concomitant]
     Indication: BLOOD LUTEINISING HORMONE DECREASED
     Dosage: UNK
     Dates: start: 20051027
  9. TESTOSTERONE ENANTATE [Concomitant]
     Indication: BLOOD FOLLICLE STIMULATING HORMONE DECREASED
  10. TESTOSTERONE ENANTATE [Concomitant]
     Indication: HYPOGONADISM MALE
  11. LEVOTHYROXINE [Concomitant]
     Indication: BLOOD THYROID STIMULATING HORMONE DECREASED
     Dosage: UNK
     Dates: start: 20051027
  12. LEVOTHYROXINE [Concomitant]
     Indication: PRIMARY HYPOTHYROIDISM
  13. HYDROCORTISONE [Concomitant]
     Indication: BLOOD CORTICOTROPHIN DECREASED
     Dosage: UNK
     Dates: start: 20051027
  14. FLUDROCORTISONE [Concomitant]
     Indication: BLOOD CORTICOTROPHIN DECREASED
     Dosage: UNK
     Dates: start: 20051027

REACTIONS (1)
  - Epilepsy [Unknown]
